FAERS Safety Report 9678272 (Version 1)
Quarter: 2013Q4

REPORT INFORMATION
  Report Type: Spontaneous
  Country: US (occurrence: US)
  Receive Date: 20131108
  Receipt Date: 20131108
  Transmission Date: 20140711
  Serious: Yes (Other)
  Sender: FDA-Public Use
  Company Number: US-PFIZER INC-2013316710

PATIENT
  Age: 44 Year
  Sex: Female

DRUGS (1)
  1. LEVOTHYROXINE SODIUM [Suspect]
     Dosage: UNK

REACTIONS (6)
  - Bronchial disorder [Unknown]
  - Dyspnoea [Unknown]
  - Haemoptysis [Recovered/Resolved]
  - Dysphonia [Unknown]
  - Electrocardiogram abnormal [Unknown]
  - Thyroid function test abnormal [Unknown]
